FAERS Safety Report 6701232-X (Version None)
Quarter: 2010Q2

REPORT INFORMATION
  Report Type: 
  Country: None (occurrence: None)
  Receive Date: 20100427
  Receipt Date: 20100413
  Transmission Date: 20101027
  Serious: Yes (Hospitalization, Other)
  Sender: FDA-Public Use
  Company Number: 009498

PATIENT
  Age: 57 Year
  Sex: Male

DRUGS (3)
  1. BUSULFEX [Suspect]
     Indication: STEM CELL TRANSPLANT
  2. CYCLOSPORINE [Concomitant]
  3. METHOTREXATE [Concomitant]

REACTIONS (8)
  - ACUTE GRAFT VERSUS HOST DISEASE [None]
  - CHRONIC GRAFT VERSUS HOST DISEASE [None]
  - DYSPNOEA [None]
  - HERPES ZOSTER [None]
  - KAPOSI'S SARCOMA [None]
  - PULMONARY FIBROSIS [None]
  - VENOOCCLUSIVE LIVER DISEASE [None]
  - WEIGHT DECREASED [None]
